FAERS Safety Report 23585625 (Version 1)
Quarter: 2024Q1

REPORT INFORMATION
  Report Type: Spontaneous
  Country: IT (occurrence: IT)
  Receive Date: 20240301
  Receipt Date: 20240301
  Transmission Date: 20240410
  Serious: Yes (Hospitalization)
  Sender: FDA-Public Use
  Company Number: IT-SUN PHARMACEUTICAL INDUSTRIES LTD-2024RR-433777

PATIENT
  Age: 74 Year
  Sex: Female

DRUGS (1)
  1. METFORMIN [Suspect]
     Active Substance: METFORMIN HYDROCHLORIDE
     Indication: Product used for unknown indication
     Dosage: 850 MG 2 TIMES/DAY - CHRONIC THERAPY
     Route: 048

REACTIONS (5)
  - Shock [Recovered/Resolved]
  - Lactic acidosis [Recovered/Resolved]
  - Blood creatinine increased [Recovered/Resolved]
  - Malaise [Recovered/Resolved]
  - Confusional state [Recovered/Resolved]

NARRATIVE: CASE EVENT DATE: 20231109
